FAERS Safety Report 15468693 (Version 3)
Quarter: 2018Q4

REPORT INFORMATION
  Report Type: Report from Study
  Country: BR (occurrence: BR)
  Receive Date: 20181005
  Receipt Date: 20181203
  Transmission Date: 20190204
  Serious: Yes (Other)
  Sender: FDA-Public Use
  Company Number: BR-SAKK-2018SA244639AA

PATIENT
  Age: 64 Year
  Sex: Female
  Weight: 64 kg

DRUGS (2)
  1. INSULIN GLARGINE/LIXISENATIDE [Suspect]
     Active Substance: INSULIN GLARGINE\LIXISENATIDE
     Dosage: 30 IU, QD
     Route: 058
  2. INSULIN GLARGINE/LIXISENATIDE [Suspect]
     Active Substance: INSULIN GLARGINE\LIXISENATIDE
     Indication: TYPE 2 DIABETES MELLITUS
     Dosage: 32 IU, QD (IN MORNING)
     Route: 058
     Dates: start: 20180803

REACTIONS (12)
  - Weight decreased [Recovering/Resolving]
  - Abdominal pain [Recovered/Resolved]
  - Depressed mood [Recovering/Resolving]
  - Malaise [Recovering/Resolving]
  - Blood glucose increased [Recovering/Resolving]
  - Blood glucose fluctuation [Recovering/Resolving]
  - Intentional product misuse [Unknown]
  - Hyperglycaemia [Recovering/Resolving]
  - Drug ineffective [Unknown]
  - Diabetic coma [Recovering/Resolving]
  - Blood glucose abnormal [Recovering/Resolving]
  - Swelling [Recovering/Resolving]

NARRATIVE: CASE EVENT DATE: 20180823
